FAERS Safety Report 11615233 (Version 1)
Quarter: 2015Q4

REPORT INFORMATION
  Report Type: Spontaneous
  Country: US (occurrence: None)
  Receive Date: 20151008
  Receipt Date: 20151008
  Transmission Date: 20160304
  Serious: Yes (Hospitalization, Disabling)
  Sender: FDA-Public Use
  Company Number: None

PATIENT
  Age: 62 Year
  Sex: Female
  Weight: 44.45 kg

DRUGS (2)
  1. COMPOUNDED NITROFURANTOIN-HYDROCORTISONE [Suspect]
     Active Substance: HYDROCORTISONE\NITROFURANTOIN
     Indication: POLLAKIURIA
     Route: 066
     Dates: start: 20140131, end: 20140331
  2. COMPOUNDED NITROFURANTOIN-HYDROCORTISONE [Suspect]
     Active Substance: HYDROCORTISONE\NITROFURANTOIN
     Indication: LOWER URINARY TRACT SYMPTOMS
     Route: 066
     Dates: start: 20140131, end: 20140331

REACTIONS (7)
  - Iatrogenic injury [None]
  - Bladder perforation [None]
  - Urinary tract infection [None]
  - Rash [None]
  - Inflammation [None]
  - Product solubility abnormal [None]
  - Fungal infection [None]

NARRATIVE: CASE EVENT DATE: 20140115
